FAERS Safety Report 4761191-6 (Version None)
Quarter: 2005Q3

REPORT INFORMATION
  Report Type: 
  Country: None (occurrence: None)
  Receive Date: 20050901
  Receipt Date: 20050823
  Transmission Date: 20060218
  Serious: Yes (Other)
  Sender: FDA-Public Use
  Company Number: 2005118880

PATIENT
  Age: 32 Year
  Sex: Female
  Weight: 61 kg

DRUGS (2)
  1. CABERGOLINE [Suspect]
     Indication: HYPERPROLACTINAEMIA
     Dosage: 0.75 MG WEEKLY (0.5 MG), ORAL 1.5 MG WEEKLY (0.5 MG )
     Route: 048
     Dates: start: 20011101
  2. CABERGOLINE [Suspect]
     Indication: HYPERPROLACTINAEMIA
     Dosage: 0.75 MG WEEKLY (0.5 MG), ORAL 1.5 MG WEEKLY (0.5 MG )
     Route: 048
     Dates: start: 20050301

REACTIONS (3)
  - BLOOD PROLACTIN INCREASED [None]
  - PITUITARY HAEMORRHAGE [None]
  - PITUITARY TUMOUR BENIGN [None]
